FAERS Safety Report 24028347 (Version 3)
Quarter: 2024Q3

REPORT INFORMATION
  Report Type: Spontaneous
  Country: BD (occurrence: BD)
  Receive Date: 20240628
  Receipt Date: 20240711
  Transmission Date: 20241017
  Serious: Yes (Other)
  Sender: ROCHE
  Company Number: BD-ROCHE-10000011682

PATIENT
  Age: 65 Year
  Sex: Male
  Weight: 67 kg

DRUGS (6)
  1. TECENTRIQ [Suspect]
     Active Substance: ATEZOLIZUMAB
     Indication: Small cell lung cancer
     Route: 065
  2. comet XR- 500 [Concomitant]
  3. Atova 20 [Concomitant]
  4. Flugal 150 [Concomitant]
  5. Micoral gel [Concomitant]
  6. zimax [Concomitant]

REACTIONS (2)
  - Stomatitis [Unknown]
  - Haemoglobin decreased [Unknown]
